FAERS Safety Report 15019617 (Version 1)
Quarter: 2018Q2

REPORT INFORMATION
  Report Type: Other
  Country: JP (occurrence: JP)
  Receive Date: 20180618
  Receipt Date: 20180618
  Transmission Date: 20180711
  Serious: Yes (Hospitalization)
  Sender: FDA-Public Use
  Company Number: JP-DENTSPLY-2018SCDP000202

PATIENT
  Age: 85 Year
  Sex: Female
  Weight: 51.6 kg

DRUGS (5)
  1. LIDOCAINE. [Suspect]
     Active Substance: LIDOCAINE
     Dosage: 20 MG, TRANSTRACHEAL SPRAY AND SPLASHING 2% LIDOCAINE
     Route: 061
  2. HYDROXYZINE HYDROCHLORIDE. [Concomitant]
     Active Substance: HYDROXYZINE HYDROCHLORIDE
     Indication: PREMEDICATION
     Dosage: 25 MG, UNK
     Route: 030
  3. LIDOCAINE. [Suspect]
     Active Substance: LIDOCAINE
     Indication: PREMEDICATION
     Dosage: 20 MG, GARGLE
  4. MIDAZOLAM [Concomitant]
     Active Substance: MIDAZOLAM HYDROCHLORIDE
     Indication: SEDATIVE THERAPY
     Dosage: 1.2 MG, UNK
     Route: 042
  5. ATROPINE. [Concomitant]
     Active Substance: ATROPINE
     Indication: PREMEDICATION
     Dosage: 0.5 MG, UNK
     Route: 030

REACTIONS (2)
  - Stress cardiomyopathy [Recovered/Resolved]
  - Seizure [Recovered/Resolved]
